FAERS Safety Report 4810912-2 (Version None)
Quarter: 2005Q4

REPORT INFORMATION
  Report Type: 
  Country: None (occurrence: None)
  Receive Date: 20051025
  Receipt Date: 20051011
  Transmission Date: 20060501
  Serious: Yes (Disabling, Other)
  Sender: FDA-Public Use
  Company Number: 217997

PATIENT
  Age: 71 Year
  Sex: Female
  Weight: 68 kg

DRUGS (4)
  1. AVASTIN [Suspect]
     Indication: COLORECTAL CANCER METASTATIC
     Dosage: 340 MG, Q2W, INTRAVENOUS
     Route: 042
     Dates: start: 20041202, end: 20050629
  2. CAMPTOSAR [Concomitant]
  3. FLUOROURACIL [Concomitant]
  4. LEUCOVORIN CALCIUM [Concomitant]

REACTIONS (4)
  - BLINDNESS UNILATERAL [None]
  - DEHYDRATION [None]
  - DIARRHOEA [None]
  - RETINAL ARTERY THROMBOSIS [None]
